FAERS Safety Report 5935609-7 (Version None)
Quarter: 2008Q4

REPORT INFORMATION
  Report Type: 
  Country: None (occurrence: None)
  Receive Date: 20081030
  Receipt Date: 20081020
  Transmission Date: 20090506
  Serious: Yes (Death)
  Sender: FDA-Public Use
  Company Number: B0544056A

PATIENT
  Age: 37 Year
  Sex: Male

DRUGS (5)
  1. KIVEXA [Suspect]
     Indication: HIV INFECTION
     Route: 065
     Dates: start: 20060116
  2. TRIZIVIR [Suspect]
     Indication: HIV INFECTION
     Route: 065
     Dates: start: 20040914, end: 20050606
  3. NORVIR [Suspect]
     Indication: HIV INFECTION
     Route: 065
     Dates: start: 20060116
  4. REYATAZ [Suspect]
     Indication: HIV INFECTION
     Route: 065
     Dates: start: 20060116
  5. KALETRA [Suspect]
     Indication: HIV INFECTION
     Route: 065
     Dates: start: 20040914, end: 20050606

REACTIONS (1)
  - DEATH [None]
